FAERS Safety Report 5179908-8 (Version None)
Quarter: 2006Q4

REPORT INFORMATION
  Report Type: 
  Country: None (occurrence: None)
  Receive Date: 20061211
  Receipt Date: 20061109
  Transmission Date: 20070319
  Serious: Yes (Hospitalization, Other)
  Sender: FDA-Public Use
  Company Number: 2005110083

PATIENT
  Age: 60 Year
  Sex: Male
  Weight: 90.7194 kg

DRUGS (2)
  1. BEXTRA [Suspect]
     Indication: ARTHRITIS
     Dosage: 20 MG (10 MG, 2 IN 1 D)
     Dates: start: 20020508
  2. BEXTRA [Suspect]
     Indication: PAIN
     Dosage: 20 MG (10 MG, 2 IN 1 D)
     Dates: start: 20020508

REACTIONS (9)
  - ANXIETY [None]
  - CEREBROVASCULAR ACCIDENT [None]
  - DEEP VEIN THROMBOSIS [None]
  - FALL [None]
  - HYPOKINESIA [None]
  - OSTEOMYELITIS [None]
  - SHOULDER ARTHROPLASTY [None]
  - STAPHYLOCOCCAL INFECTION [None]
  - UPPER LIMB FRACTURE [None]
